FAERS Safety Report 4658851-4 (Version None)
Quarter: 2005Q2

REPORT INFORMATION
  Report Type: 
  Country: None (occurrence: None)
  Receive Date: 20050509
  Receipt Date: 20050503
  Transmission Date: 20051028
  Serious: Yes (Other)
  Sender: FDA-Public Use
  Company Number: 2005-05-0082

PATIENT
  Age: 38 Year
  Sex: Female

DRUGS (1)
  1. AERIUS [Suspect]
     Indication: RHINITIS ALLERGIC
     Dosage: ORAL
     Route: 048

REACTIONS (2)
  - CARDIAC DISORDER [None]
  - VENTRICULAR TACHYCARDIA [None]
